FAERS Safety Report 9595309 (Version 1)
Quarter: 2013Q4

REPORT INFORMATION
  Report Type: Spontaneous
  Country: US (occurrence: US)
  Receive Date: 20131004
  Receipt Date: 20131004
  Transmission Date: 20140711
  Serious: No
  Sender: FDA-Public Use
  Company Number: US-PFIZER INC-2013281785

PATIENT
  Age: 81 Year
  Sex: Female
  Weight: 56.69 kg

DRUGS (3)
  1. REVATIO [Suspect]
     Indication: PULMONARY ARTERIAL HYPERTENSION
     Dosage: UNK, 3X/DAY
     Route: 048
  2. ADCIRCA [Suspect]
     Indication: PULMONARY HYPERTENSION
     Dosage: UNK
  3. TRACLEER [Concomitant]
     Indication: PULMONARY HYPERTENSION
     Dosage: UNK

REACTIONS (6)
  - Feeling abnormal [Unknown]
  - Hyperhidrosis [Unknown]
  - Muscle tightness [Unknown]
  - Drug intolerance [Unknown]
  - Dyspnoea [Unknown]
  - Fatigue [Unknown]
